FAERS Safety Report 7365924-4 (Version None)
Quarter: 2011Q1

REPORT INFORMATION
  Report Type: 
  Country: None (occurrence: None)
  Receive Date: 20110322
  Receipt Date: 20100914
  Transmission Date: 20110831
  Serious: Yes (Other)
  Sender: FDA-Public Use
  Company Number: US-BAYER-201021598NA

PATIENT
  Sex: Female
  Weight: 62.132 kg

DRUGS (8)
  1. CITALOPRAM HYDROBROMIDE [Concomitant]
     Indication: DEPRESSION
     Dosage: 20 MG, UNK
     Route: 048
     Dates: start: 20060404
  2. OXYCODONE HCL AND ACETAMINOPHEN [Concomitant]
     Indication: PAIN
     Dosage: 325 MG, PRN
     Route: 048
     Dates: start: 20051228
  3. OMEPRAZOLE [Concomitant]
     Dosage: 20 MG, PRN
     Route: 048
     Dates: start: 20051110
  4. CIPROFLOXACIN [Concomitant]
     Indication: INFECTION
     Dosage: 250 MG, BID
     Route: 048
  5. LEVOTHROID [Concomitant]
     Dosage: 100 MCG/24HR, QD
     Route: 048
     Dates: start: 20060503
  6. YASMIN [Suspect]
     Indication: PREMENSTRUAL SYNDROME
     Dosage: 1 DF, QD
     Route: 048
     Dates: start: 20040101, end: 20060101
  7. ACYCLOVIR [Concomitant]
     Dosage: 200 MG, QID
     Route: 048
     Dates: start: 20060718
  8. FLUCONAZOLE [Concomitant]
     Indication: FUNGAL INFECTION
     Dosage: 150 MG, UNK
     Route: 048
     Dates: start: 20060802

REACTIONS (2)
  - GALLBLADDER DISORDER [None]
  - CHOLECYSTITIS CHRONIC [None]
